FAERS Safety Report 17227130 (Version 1)
Quarter: 2020Q1

REPORT INFORMATION
  Report Type: Spontaneous
  Country: DE (occurrence: DE)
  Receive Date: 20200103
  Receipt Date: 20200103
  Transmission Date: 20200409
  Serious: Yes (Life-Threatening, Hospitalization, Other)
  Sender: FDA-Public Use
  Company Number: DE-AUROBINDO-AUR-APL-2019-106932

PATIENT
  Age: 52 Year
  Sex: Female
  Weight: 77 kg

DRUGS (3)
  1. FLECAINIDE [Suspect]
     Active Substance: FLECAINIDE
     Indication: PALPITATIONS
     Dosage: 300 MILLIGRAM, IN TOTAL (300MG FLECAINIDE P.O)
     Route: 048
  2. FLECAINIDE [Suspect]
     Active Substance: FLECAINIDE
     Indication: ATRIAL FIBRILLATION
  3. BISOPROLOL [Concomitant]
     Active Substance: BISOPROLOL
     Indication: ATRIAL FIBRILLATION
     Dosage: UNK
     Route: 065

REACTIONS (4)
  - Hypotonia [Recovered/Resolved]
  - Tachypnoea [Recovered/Resolved]
  - Cardiogenic shock [Recovered/Resolved]
  - Cardiac failure acute [Recovered/Resolved]
